FAERS Safety Report 16995647 (Version 1)
Quarter: 2019Q4

REPORT INFORMATION
  Report Type: Spontaneous
  Country: BE (occurrence: BE)
  Receive Date: 20191105
  Receipt Date: 20191105
  Transmission Date: 20200122
  Serious: Yes (Other)
  Sender: FDA-Public Use
  Company Number: BE-COLLEGIUM PHARMACEUTICAL, INC.-BE-2019COL001318

PATIENT
  Sex: Female

DRUGS (7)
  1. LYRICA [Concomitant]
     Active Substance: PREGABALIN
     Indication: PRODUCT USED FOR UNKNOWN INDICATION
     Dosage: UNK
  2. KEPPRA [Concomitant]
     Active Substance: LEVETIRACETAM
     Indication: PRODUCT USED FOR UNKNOWN INDICATION
     Dosage: UNK
  3. TAPENTADOL EXTENDED RELEASE [Suspect]
     Active Substance: TAPENTADOL
     Indication: PAIN
     Dosage: 150 MG, BID
     Route: 048
  4. DUOVENT [Suspect]
     Active Substance: FENOTEROL HYDROBROMIDE
     Indication: PRODUCT USED FOR UNKNOWN INDICATION
     Dosage: 1 DF, QD
     Route: 055
  5. DUROGESIC [Suspect]
     Active Substance: FENTANYL
     Indication: PRODUCT USED FOR UNKNOWN INDICATION
     Dosage: 100 ?G, 1/HR
     Route: 062
  6. VALIUM [Concomitant]
     Active Substance: DIAZEPAM
     Indication: PRODUCT USED FOR UNKNOWN INDICATION
     Dosage: UNK
  7. CYMBALTA [Concomitant]
     Active Substance: DULOXETINE HYDROCHLORIDE
     Indication: PRODUCT USED FOR UNKNOWN INDICATION
     Dosage: UNK

REACTIONS (3)
  - Epilepsy [Recovered/Resolved]
  - Tremor [Recovered/Resolved]
  - Feeling of body temperature change [Recovered/Resolved]
